FAERS Safety Report 8829612 (Version 1)
Quarter: 2012Q4

REPORT INFORMATION
  Report Type: 
  Country: US (occurrence: US)
  Receive Date: 20121008
  Receipt Date: 20121008
  Transmission Date: 20130627
  Serious: Yes (Death)
  Sender: FDA-Public Use
  Company Number: US-ROCHE-1131605

PATIENT
  Sex: Female

DRUGS (7)
  1. RITUXAN [Suspect]
     Indication: NON-HODGKIN^S LYMPHOMA
     Dosage: 600 cc
     Route: 065
     Dates: start: 19990629
  2. VINCRISTINE [Concomitant]
  3. TYLENOL [Concomitant]
  4. ZANTAC [Concomitant]
     Route: 065
  5. DECADRON [Concomitant]
     Route: 065
  6. BENADRYL [Concomitant]
     Dosage: 50 W in 150 cc
     Route: 065
  7. CYTOXAN [Concomitant]

REACTIONS (3)
  - Death [Fatal]
  - Fatigue [Unknown]
  - Pain [Unknown]
